FAERS Safety Report 5093919-2 (Version None)
Quarter: 2006Q3

REPORT INFORMATION
  Report Type: 
  Country: None (occurrence: None)
  Receive Date: 20060829
  Receipt Date: 20060816
  Transmission Date: 20061208
  Serious: Yes (Hospitalization)
  Sender: FDA-Public Use
  Company Number: 2006100457

PATIENT
  Age: 42 Year
  Sex: Female

DRUGS (4)
  1. NIFEDIPINE [Suspect]
     Indication: PULMONARY HYPERTENSION
     Dosage: 60 MG (30 MG, BID), ORAL
     Route: 048
  2. FUROSEMIDE [Concomitant]
  3. SPIRONOLACTONE [Concomitant]
  4. WARFARIN SODIUM [Concomitant]

REACTIONS (4)
  - DYSPNOEA EXERTIONAL [None]
  - FATIGUE [None]
  - HYPOTENSION [None]
  - RESPIRATORY RATE INCREASED [None]
